FAERS Safety Report 17601829 (Version 1)
Quarter: 2020Q1

REPORT INFORMATION
  Report Type: Spontaneous
  Country: BG (occurrence: BG)
  Receive Date: 20200331
  Receipt Date: 20200331
  Transmission Date: 20200409
  Serious: Yes (Other)
  Sender: FDA-Public Use
  Company Number: BG-ASTRAZENECA-2020SE42311

PATIENT
  Sex: Male

DRUGS (1)
  1. TAGRISSO [Suspect]
     Active Substance: OSIMERTINIB
     Route: 048
     Dates: start: 201908

REACTIONS (3)
  - Malignant neoplasm progression [Unknown]
  - Motor dysfunction [Not Recovered/Not Resolved]
  - Metastases to spine [Unknown]

NARRATIVE: CASE EVENT DATE: 2020
